FAERS Safety Report 9603167 (Version 2)
Quarter: 2013Q4

REPORT INFORMATION
  Report Type: Spontaneous
  Country: US (occurrence: US)
  Receive Date: 20131007
  Receipt Date: 20131007
  Transmission Date: 20140711
  Serious: Yes (Other)
  Sender: FDA-Public Use
  Company Number: PHHY2013US103672

PATIENT
  Sex: Male

DRUGS (9)
  1. BACLOFEN INTRATHECAL [Suspect]
     Indication: MUSCLE SPASTICITY
     Dosage: 134.4 UG, UNK
     Route: 037
  2. METFORMIN [Suspect]
  3. AMLODIPINE [Suspect]
  4. LOSARTAN [Suspect]
  5. ATORVASTATIN [Suspect]
  6. GLYBURIDE [Suspect]
     Dosage: UNK UKN, UNK
  7. TERAZOSIN [Suspect]
     Dosage: UNK UKN, UNK
  8. LIPITOR [Suspect]
  9. TOBRADEX [Suspect]

REACTIONS (1)
  - Muscular weakness [Unknown]
